FAERS Safety Report 5788173-X (Version None)
Quarter: 2008Q2

REPORT INFORMATION
  Report Type: 
  Country: None (occurrence: None)
  Receive Date: 20080623
  Receipt Date: 20061012
  Transmission Date: 20081010
  Serious: Yes (Hospitalization)
  Sender: FDA-Public Use
  Company Number: US-JNJFOC-20080506081

PATIENT
  Age: 75 Year
  Sex: Male
  Weight: 60 kg

DRUGS (11)
  1. DECITABINE (DECITABINE) LYOPHILIZED POWDER [Suspect]
     Indication: MYELODYSPLASTIC SYNDROME
     Dosage: 10 MG/M2, 1 IN 1 DAY, INTRAVENOUS
     Route: 042
     Dates: start: 20040810, end: 20040819
  2. PROCRIT [Concomitant]
  3. NEUPOGEN [Concomitant]
  4. AUGMENTIN '125' [Concomitant]
  5. MORPHINE SULFATE [Concomitant]
  6. COZAAR [Concomitant]
  7. FLOMAX [Concomitant]
  8. FOLIC ACID [Concomitant]
  9. LANTUS [Concomitant]
  10. GLYBURIDE [Concomitant]
  11. STARLIX [Concomitant]

REACTIONS (9)
  - BLOOD CULTURE POSITIVE [None]
  - BONE MARROW FAILURE [None]
  - CANDIDIASIS [None]
  - CLOSTRIDIUM DIFFICILE COLITIS [None]
  - COGNITIVE DISORDER [None]
  - DIARRHOEA [None]
  - ENTEROCOCCAL INFECTION [None]
  - LUNG INFECTION [None]
  - SEPSIS [None]
